FAERS Safety Report 5707822-5 (Version None)
Quarter: 2008Q2

REPORT INFORMATION
  Report Type: 
  Country: None (occurrence: None)
  Receive Date: 20080417
  Receipt Date: 20080410
  Transmission Date: 20081010
  Serious: Yes (Other)
  Sender: FDA-Public Use
  Company Number: US-NOVOPROD-273939

PATIENT

DRUGS (4)
  1. NOVOLOG [Suspect]
     Indication: DIABETES MELLITUS
     Dosage: UNKNOWN
     Dates: start: 20071201, end: 20070201
  2. SYMLIN [Suspect]
     Indication: DIABETES MELLITUS
     Dosage: 120 UG, TID
     Route: 058
     Dates: start: 20071201, end: 20080101
  3. SYMLIN [Suspect]
     Dates: start: 20080101
  4. LANTUS [Concomitant]
     Indication: DIABETES MELLITUS
     Dates: start: 20080301

REACTIONS (6)
  - BLOOD GLUCOSE INCREASED [None]
  - CAUSTIC INJURY [None]
  - CONFUSIONAL STATE [None]
  - MALAISE [None]
  - SWELLING [None]
  - WEIGHT INCREASED [None]
